FAERS Safety Report 18730355 (Version 1)
Quarter: 2021Q1

REPORT INFORMATION
  Report Type: Spontaneous
  Country: US (occurrence: US)
  Receive Date: 20210112
  Receipt Date: 20210112
  Transmission Date: 20210419
  Serious: No
  Sender: FDA-Public Use
  Company Number: US-INTRA-CELLULAR THERAPIES, INC.-2020ICT00211

PATIENT
  Age: 59 Year
  Sex: Male

DRUGS (3)
  1. LOXAPINE. [Concomitant]
     Active Substance: LOXAPINE
  2. CAPLYTA [Suspect]
     Active Substance: LUMATEPERONE
     Indication: SCHIZOPHRENIA
     Dosage: 42 MG, 1X/DAY
     Route: 048
     Dates: start: 202010, end: 202010
  3. CAPLYTA [Suspect]
     Active Substance: LUMATEPERONE
     Dosage: SAMPLES; ON FOR 10?20 DAYS
     Route: 048
     Dates: start: 2020, end: 2020

REACTIONS (2)
  - Dizziness [Unknown]
  - Balance disorder [Unknown]

NARRATIVE: CASE EVENT DATE: 202010
